FAERS Safety Report 17745424 (Version 2)
Quarter: 2020Q3

REPORT INFORMATION
  Report Type: Spontaneous
  Country: AU (occurrence: AU)
  Receive Date: 20200505
  Receipt Date: 20200806
  Transmission Date: 20201104
  Serious: Yes (Other)
  Sender: FDA-Public Use
  Company Number: AU-ROCHE-2592803

PATIENT
  Age: 78 Year
  Sex: Male

DRUGS (2)
  1. ZYKADIA [Suspect]
     Active Substance: CERITINIB
     Indication: SMALL CELL LUNG CANCER
     Dosage: ONGOING
     Route: 065
     Dates: start: 201710
  2. ALECTINIB. [Suspect]
     Active Substance: ALECTINIB
     Indication: SMALL CELL LUNG CANCER
     Dosage: ONGOING
     Route: 065
     Dates: start: 201805

REACTIONS (3)
  - Lethargy [Unknown]
  - Metastases to bone [Unknown]
  - Thyroid mass [Unknown]

NARRATIVE: CASE EVENT DATE: 201906
